FAERS Safety Report 8119329-9 (Version None)
Quarter: 2012Q1

REPORT INFORMATION
  Report Type: 
  Country: None (occurrence: None)
  Receive Date: 20120207
  Receipt Date: 20120124
  Transmission Date: 20120608
  Serious: Yes (Other)
  Sender: FDA-Public Use
  Company Number: GB-MYLANLABS-2012S1002523

PATIENT
  Age: 15 Month
  Sex: Female

DRUGS (3)
  1. ANESTHETICS, GENERAL [Concomitant]
  2. HEPARIN [Concomitant]
  3. MELPHALAN HYDROCHLORIDE [Suspect]
     Indication: RETINOBLASTOMA
     Route: 013

REACTIONS (4)
  - VITREOUS HAEMORRHAGE [None]
  - RETINAL PIGMENT EPITHELIOPATHY [None]
  - CRANIAL NERVE PARALYSIS [None]
  - RETINAL DETACHMENT [None]
